FAERS Safety Report 7640909-9 (Version None)
Quarter: 2011Q3

REPORT INFORMATION
  Report Type: 
  Country: None (occurrence: None)
  Receive Date: 20110728
  Receipt Date: 20110728
  Transmission Date: 20111222
  Serious: Yes (Other)
  Sender: FDA-Public Use
  Company Number: None

PATIENT
  Age: 35 Year
  Sex: Female
  Weight: 108.86 kg

DRUGS (5)
  1. LIDOCAINE [Concomitant]
  2. LYRICA [Suspect]
     Indication: PAIN IN EXTREMITY
     Dates: start: 20110726, end: 20110727
  3. LYRICA [Suspect]
     Indication: SACROILIITIS
     Dates: start: 20110726, end: 20110727
  4. LYRICA [Suspect]
     Indication: BURSITIS
     Dates: start: 20110726, end: 20110727
  5. LYRICA [Suspect]
     Indication: BACK PAIN
     Dates: start: 20110726, end: 20110727

REACTIONS (8)
  - COLD SWEAT [None]
  - DYSSTASIA [None]
  - NAUSEA [None]
  - HEADACHE [None]
  - SWELLING FACE [None]
  - VERTIGO [None]
  - DIZZINESS [None]
  - VISUAL IMPAIRMENT [None]
